FAERS Safety Report 9451968 (Version 1)
Quarter: 2013Q3

REPORT INFORMATION
  Report Type: Spontaneous
  Country: US (occurrence: US)
  Receive Date: 20130812
  Receipt Date: 20130812
  Transmission Date: 20140515
  Serious: No
  Sender: FDA-Public Use
  Company Number: US-BIOGENIDEC-2013BI072826

PATIENT
  Sex: Female

DRUGS (1)
  1. TYSABRI [Suspect]
     Indication: MULTIPLE SCLEROSIS
     Route: 042
     Dates: start: 20081008, end: 20120124

REACTIONS (9)
  - Loss of control of legs [Unknown]
  - Balance disorder [Unknown]
  - Gait disturbance [Unknown]
  - Palpitations [Unknown]
  - Hypoaesthesia [Unknown]
  - Pain in extremity [Unknown]
  - Hypertension [Unknown]
  - Headache [Unknown]
  - Multiple sclerosis relapse [Unknown]
